FAERS Safety Report 6081792-5 (Version None)
Quarter: 2009Q1

REPORT INFORMATION
  Report Type: 
  Country: None (occurrence: None)
  Receive Date: 20090218
  Receipt Date: 20090209
  Transmission Date: 20090719
  Serious: Yes (Other)
  Sender: FDA-Public Use
  Company Number: BE-BAYER-200913607GPV

PATIENT
  Age: 29 Year
  Sex: Male

DRUGS (1)
  1. CIPROFLOXACIN [Suspect]
     Indication: PYELONEPHRITIS ACUTE
     Dosage: UNIT DOSE: 500 MG
     Route: 065
     Dates: start: 20080722

REACTIONS (3)
  - JOINT DISLOCATION [None]
  - TENDON RUPTURE [None]
  - TENDONITIS [None]
